FAERS Safety Report 20341530 (Version 1)
Quarter: 2022Q1

REPORT INFORMATION
  Report Type: Report from Study
  Country: US (occurrence: US)
  Receive Date: 20220117
  Receipt Date: 20220117
  Transmission Date: 20220423
  Serious: Yes (Hospitalization)
  Sender: FDA-Public Use
  Company Number: US-PFIZER INC-202200021374

PATIENT
  Age: 68 Year
  Sex: Male

DRUGS (5)
  1. PALBOCICLIB [Suspect]
     Active Substance: PALBOCICLIB
     Indication: Mantle cell lymphoma recurrent
     Dosage: 100 MG QD ON DAYS 1-21, CYCLE=28 DAYS
     Route: 048
     Dates: start: 20150423
  2. DEMEROL [Suspect]
     Active Substance: MEPERIDINE HYDROCHLORIDE
     Indication: Sedation
     Dosage: 50 MG
     Dates: start: 20150603
  3. IBRUTINIB [Suspect]
     Active Substance: IBRUTINIB
     Indication: Mantle cell lymphoma recurrent
     Dosage: CYCLE=28 DAYS, QD
     Route: 048
     Dates: start: 20150423
  4. ATIVAN [Suspect]
     Active Substance: LORAZEPAM
     Indication: Sedation
     Dosage: UNKNOWN NUMBER OF 0.5 MG
     Dates: start: 20150603
  5. ATIVAN [Suspect]
     Active Substance: LORAZEPAM
     Indication: Anxiety
     Dosage: 1 MG
     Dates: start: 20150603

REACTIONS (3)
  - Encephalitis viral [Unknown]
  - Hypoxia [Recovered/Resolved]
  - Somnolence [Recovered/Resolved]

NARRATIVE: CASE EVENT DATE: 20150603
